FAERS Safety Report 14896328 (Version 1)
Quarter: 2018Q2

REPORT INFORMATION
  Report Type: Spontaneous
  Country: US (occurrence: US)
  Receive Date: 20180427
  Receipt Date: 20180427
  Transmission Date: 20180711
  Serious: Yes (Death, Hospitalization)
  Sender: FDA-Public Use
  Company Number: None

PATIENT
  Age: 14 Year
  Sex: Female
  Weight: 63.9 kg

DRUGS (4)
  1. MERCAPTOPURINE. [Suspect]
     Active Substance: MERCAPTOPURINE
     Dates: end: 20180422
  2. METHOTREXATE. [Suspect]
     Active Substance: METHOTREXATE
     Dates: end: 20180412
  3. PREDNISONE. [Suspect]
     Active Substance: PREDNISONE
     Dates: end: 20180416
  4. VINCRISTINE SULFATE. [Suspect]
     Active Substance: VINCRISTINE SULFATE
     Dates: end: 20180412

REACTIONS (8)
  - Sepsis [None]
  - Cardiac arrest [None]
  - Abdominal pain [None]
  - Tachycardia [None]
  - Colitis [None]
  - Metabolic acidosis [None]
  - Haematemesis [None]
  - Hyperglycaemia [None]

NARRATIVE: CASE EVENT DATE: 20180423
